FAERS Safety Report 26071182 (Version 1)
Quarter: 2025Q4

REPORT INFORMATION
  Report Type: Spontaneous
  Country: CN (occurrence: CN)
  Receive Date: 20251120
  Receipt Date: 20251120
  Transmission Date: 20260117
  Serious: Yes (Hospitalization)
  Sender: ELI LILLY AND COMPANY
  Company Number: CN-ELI_LILLY_AND_COMPANY-CN202511020818

PATIENT
  Age: 62 Year
  Sex: Female
  Weight: 52 kg

DRUGS (1)
  1. RETEVMO [Suspect]
     Active Substance: SELPERCATINIB
     Indication: Lung neoplasm malignant
     Dosage: 160 MG, BID
     Route: 048
     Dates: start: 20250930, end: 20251027

REACTIONS (1)
  - Liver injury [Recovering/Resolving]

NARRATIVE: CASE EVENT DATE: 20251008
